FAERS Safety Report 7610927-5 (Version None)
Quarter: 2011Q3

REPORT INFORMATION
  Report Type: 
  Country: None (occurrence: None)
  Receive Date: 20110715
  Receipt Date: 20110630
  Transmission Date: 20111222
  Serious: Yes (Other)
  Sender: FDA-Public Use
  Company Number: PHHY2011IT58030

PATIENT
  Sex: Female

DRUGS (5)
  1. CATAPRES [Suspect]
     Indication: HYPERTENSION
     Dosage: 2.5 MG, WEEKLY
     Route: 062
     Dates: start: 20110505, end: 20110507
  2. LACIPIL [Concomitant]
     Dosage: 1.5 DF, UNK
     Route: 048
     Dates: start: 20110308, end: 20110507
  3. PROPAFENONE HCL [Concomitant]
     Dosage: 2 DF, UNK
     Route: 048
  4. VALSARTAN  AND HYDROCHLOROTHIAZIDE [Suspect]
     Indication: HYPERTENSION
     Dosage: 1 DF DAILY, VALSARTAN 320 MG AND HYDROCHLOROTHIAZIDE 25 MG
     Route: 048
     Dates: start: 20110308, end: 20110507
  5. INDAPAMIDE [Concomitant]

REACTIONS (4)
  - ASTHENIA [None]
  - BRADYCARDIA [None]
  - HYPOTENSION [None]
  - CHEST DISCOMFORT [None]
